FAERS Safety Report 7179393-0 (Version None)
Quarter: 2010Q4

REPORT INFORMATION
  Report Type: 
  Country: None (occurrence: None)
  Receive Date: 20101221
  Receipt Date: 20101203
  Transmission Date: 20110411
  Serious: No
  Sender: FDA-Public Use
  Company Number: US-B.I. PHARMACEUTICALS,INC./RIDGEFIELD-2010-BP-12740BP

PATIENT
  Sex: Female

DRUGS (5)
  1. PRADAXA [Suspect]
     Dates: end: 20101111
  2. METOPROLOL [Concomitant]
  3. DIGOXIN [Concomitant]
  4. LASIX [Concomitant]
  5. LIPITOR [Concomitant]

REACTIONS (3)
  - HAEMORRHOIDS [None]
  - INFUSION SITE HAEMORRHAGE [None]
  - RECTAL HAEMORRHAGE [None]
